FAERS Safety Report 15993653 (Version 1)
Quarter: 2019Q1

REPORT INFORMATION
  Report Type: Spontaneous
  Country: US (occurrence: US)
  Receive Date: 20190222
  Receipt Date: 20190222
  Transmission Date: 20190418
  Serious: Yes (Other)
  Sender: FDA-Public Use
  Company Number: US-SA-2019SA046355

PATIENT
  Age: 78 Year
  Sex: Male

DRUGS (2)
  1. NOVOLOG [Concomitant]
     Active Substance: INSULIN ASPART
     Dosage: UNK
     Route: 065
  2. LANTUS SOLOSTAR [Suspect]
     Active Substance: INSULIN GLARGINE
     Indication: TYPE 2 DIABETES MELLITUS
     Dosage: 34 U, QD
     Route: 065

REACTIONS (7)
  - Cardiac failure [Unknown]
  - Atrial fibrillation [Unknown]
  - Bladder cancer [Unknown]
  - Back disorder [Unknown]
  - Renal cancer [Unknown]
  - Loss of consciousness [Unknown]
  - Road traffic accident [Unknown]
